FAERS Safety Report 5249825-3 (Version None)
Quarter: 2007Q1

REPORT INFORMATION
  Report Type: 
  Country: None (occurrence: None)
  Receive Date: 20070223
  Receipt Date: 20070214
  Transmission Date: 20070707
  Serious: Yes (Other)
  Sender: FDA-Public Use
  Company Number: VISP-NO-0702S-0066

PATIENT
  Age: 83 Year
  Sex: Female

DRUGS (4)
  1. VISIPAQUE [Suspect]
     Indication: DRUG USE FOR UNKNOWN INDICATION
     Dosage: 2 X 4 ML, MIN, I.A.
     Route: 013
     Dates: start: 20070209, end: 20070209
  2. VISIPAQUE [Suspect]
  3. VISIPAQUE [Suspect]
  4. VISIPAQUE [Suspect]

REACTIONS (2)
  - ANAPHYLACTOID REACTION [None]
  - BACK PAIN [None]
